FAERS Safety Report 7668973-1 (Version None)
Quarter: 2011Q3

REPORT INFORMATION
  Report Type: 
  Country: None (occurrence: None)
  Receive Date: 20110808
  Receipt Date: 20110728
  Transmission Date: 20111222
  Serious: Yes (Hospitalization)
  Sender: FDA-Public Use
  Company Number: NL-GLAXOSMITHKLINE-B0734079A

PATIENT
  Sex: Female

DRUGS (4)
  1. LAPATINIB [Suspect]
     Indication: HEAD AND NECK CANCER
     Dosage: 1250MG PER DAY
     Route: 048
     Dates: start: 20110524
  2. DOCETAXEL [Suspect]
     Indication: HEAD AND NECK CANCER
     Dosage: 110MG EVERY 3 WEEKS
     Route: 042
     Dates: start: 20110524
  3. LOPERAMIDE HCL [Concomitant]
     Dates: start: 20110101
  4. PRIMPERAN TAB [Concomitant]
     Dosage: 20MG PER DAY
     Dates: start: 20110517

REACTIONS (2)
  - DIARRHOEA [None]
  - PNEUMONIA [None]
